FAERS Safety Report 6641964-5 (Version None)
Quarter: 2010Q1

REPORT INFORMATION
  Report Type: 
  Country: None (occurrence: None)
  Receive Date: 20100319
  Receipt Date: 20100308
  Transmission Date: 20100710
  Serious: Yes (Death)
  Sender: FDA-Public Use
  Company Number: AU-JNJFOC-20100304203

PATIENT
  Age: 32 Year
  Sex: Female

DRUGS (6)
  1. TRAMADOL HYDROCHLORIDE [Suspect]
     Indication: DRUG USE FOR UNKNOWN INDICATION
     Route: 065
  2. VENLAFAXINE [Interacting]
     Indication: DRUG USE FOR UNKNOWN INDICATION
     Route: 065
  3. DIAZEPAM [Concomitant]
     Route: 065
  4. PARACETAMOL [Concomitant]
  5. PROPOXYPHENE HCL [Concomitant]
     Route: 065
  6. ETHANOL [Concomitant]
     Route: 065

REACTIONS (5)
  - ASPIRATION [None]
  - DRUG INTERACTION [None]
  - OBSTRUCTIVE AIRWAYS DISORDER [None]
  - OVERDOSE [None]
  - VOMITING [None]
